FAERS Safety Report 6050490-6 (Version None)
Quarter: 2009Q1

REPORT INFORMATION
  Report Type: 
  Country: None (occurrence: None)
  Receive Date: 20090126
  Receipt Date: 20090121
  Transmission Date: 20090719
  Serious: Yes (Other)
  Sender: FDA-Public Use
  Company Number: US-BAYER-200813814NA

PATIENT
  Age: 30 Year
  Sex: Female

DRUGS (1)
  1. MIRENA [Suspect]
     Indication: CONTRACEPTION
     Route: 015
     Dates: start: 20040701, end: 20071128

REACTIONS (3)
  - ANTEPARTUM HAEMORRHAGE [None]
  - PLACENTA ACCRETA [None]
  - POSTPARTUM HAEMORRHAGE [None]
